FAERS Safety Report 8933936 (Version 1)
Quarter: 2012Q4

REPORT INFORMATION
  Report Type: 
  Country: US (occurrence: US)
  Receive Date: 20121129
  Receipt Date: 20121129
  Transmission Date: 20130627
  Serious: No
  Sender: FDA-Public Use
  Company Number: US-VERTEX PHARMACEUTICAL INC.-2012-025097

PATIENT
  Age: 59 Year
  Sex: Female
  Weight: 82 kg

DRUGS (12)
  1. VX-950 (TELAPREVIR) [Suspect]
     Indication: HEPATITIS C
     Dosage: 750 mg, tid
     Route: 048
  2. PEGASYS [Concomitant]
     Indication: HEPATITIS C
     Dosage: 180 ?g, UNK
  3. RIBAVIRIN [Concomitant]
     Indication: HEPATITIS C
     Dosage: 200 mg, UNK
  4. PROMACTA [Concomitant]
     Dosage: 12.5 mg, UNK
  5. CIPRO                              /00697201/ [Concomitant]
     Dosage: 250 mg, UNK
  6. HYDROCHLOROTH [Concomitant]
     Dosage: 25 mg, UNK
  7. VITAMIN E                          /00110501/ [Concomitant]
     Dosage: UNK , UNK
  8. CALCIUM CITRATE [Concomitant]
     Dosage: 200 mg, UNK
  9. VITAMIN D /00107901/ [Concomitant]
     Dosage: UNK ut, UNK
  10. MULTIVITAMIN                       /00097801/ [Concomitant]
  11. TYLENOL /00020001/ [Concomitant]
  12. VITAMIN B C COMPLEX [Concomitant]

REACTIONS (1)
  - Anaemia [Unknown]
